FAERS Safety Report 7807325-8 (Version None)
Quarter: 2011Q4

REPORT INFORMATION
  Report Type: 
  Country: None (occurrence: None)
  Receive Date: 20111011
  Receipt Date: 20111006
  Transmission Date: 20120403
  Serious: No
  Sender: FDA-Public Use
  Company Number: US-BIOGENIDEC-2011BI038362

PATIENT
  Age: 46 Year
  Sex: Male

DRUGS (7)
  1. XANAX [Concomitant]
     Indication: VISUAL IMPAIRMENT
     Dates: start: 19960101
  2. LEVOTHYROXINE SODIUM [Concomitant]
     Indication: THYROID DISORDER
     Dates: start: 20050101
  3. BLOOD PRESSURE MEDICINE (NOS) [Concomitant]
     Indication: HYPERTENSION
  4. AVONEX [Suspect]
     Indication: MULTIPLE SCLEROSIS
     Route: 030
     Dates: start: 19960101, end: 20030801
  5. XANAX [Concomitant]
     Dates: start: 19960101
  6. AVONEX [Suspect]
     Route: 030
     Dates: start: 20030801, end: 20110701
  7. XANAX [Concomitant]
     Indication: AGITATION
     Dates: start: 19960101

REACTIONS (4)
  - VISUAL IMPAIRMENT [None]
  - THYROID DISORDER [None]
  - HYPERTENSION [None]
  - AGITATION [None]
